FAERS Safety Report 25853087 (Version 1)
Quarter: 2025Q3

REPORT INFORMATION
  Report Type: Spontaneous
  Country: CA (occurrence: CA)
  Receive Date: 20250926
  Receipt Date: 20250926
  Transmission Date: 20251020
  Serious: Yes (Hospitalization, Other)
  Sender: MERZ
  Company Number: CA-MERZ PHARMACEUTICALS LLC-ACO_179176_2025

PATIENT
  Sex: Female

DRUGS (1)
  1. DALFAMPRIDINE [Suspect]
     Active Substance: DALFAMPRIDINE
     Indication: Product used for unknown indication
     Route: 065

REACTIONS (2)
  - Respiratory disorder [Unknown]
  - Therapy cessation [Unknown]
